FAERS Safety Report 7365298-9 (Version None)
Quarter: 2011Q1

REPORT INFORMATION
  Report Type: 
  Country: None (occurrence: None)
  Receive Date: 20110322
  Receipt Date: 20110314
  Transmission Date: 20110831
  Serious: No
  Sender: FDA-Public Use
  Company Number: US-BIOGENIDEC-2011BI003417

PATIENT
  Age: 56 Year
  Sex: Male

DRUGS (1)
  1. TYSABRI [Suspect]
     Indication: MULTIPLE SCLEROSIS
     Route: 042
     Dates: start: 20091222

REACTIONS (7)
  - HYPOAESTHESIA [None]
  - BACK PAIN [None]
  - GAIT DISTURBANCE [None]
  - DRUG EFFECT DECREASED [None]
  - INSOMNIA [None]
  - CENTRAL NERVOUS SYSTEM LESION [None]
  - FATIGUE [None]
